FAERS Safety Report 14078857 (Version 1)
Quarter: 2017Q4

REPORT INFORMATION
  Report Type: Spontaneous
  Country: US (occurrence: US)
  Receive Date: 20171012
  Receipt Date: 20171012
  Transmission Date: 20180321
  Serious: No
  Sender: FDA-Public Use
  Company Number: US-ASTRAZENECA-2017SF02816

PATIENT
  Sex: Female

DRUGS (1)
  1. ZOMIG ZMT [Suspect]
     Active Substance: ZOLMITRIPTAN
     Route: 048

REACTIONS (2)
  - Nasal congestion [Unknown]
  - Nasopharyngitis [Unknown]
